FAERS Safety Report 12556144 (Version 3)
Quarter: 2016Q3

REPORT INFORMATION
  Report Type: Report from Study
  Country: US (occurrence: US)
  Receive Date: 20160714
  Receipt Date: 20160804
  Transmission Date: 20161109
  Serious: Yes (Other)
  Sender: FDA-Public Use
  Company Number: US-BAYER-2016-131514

PATIENT
  Age: 59 Year
  Sex: Female

DRUGS (7)
  1. PROZAC [Interacting]
     Active Substance: FLUOXETINE HYDROCHLORIDE
  2. NEXAVAR [Suspect]
     Active Substance: SORAFENIB
     Indication: HEPATIC CANCER
     Dosage: 400 MG, BID
     Route: 048
     Dates: start: 20160705, end: 201607
  3. NEXAVAR [Suspect]
     Active Substance: SORAFENIB
     Indication: HEPATIC CANCER
     Dosage: 400 MG
     Route: 048
  4. TRAZODONE [Interacting]
     Active Substance: TRAZODONE HYDROCHLORIDE
  5. NEXAVAR [Suspect]
     Active Substance: SORAFENIB
     Indication: HEPATIC CANCER
     Dosage: 200 MG, BID
     Route: 048
     Dates: start: 201607, end: 201607
  6. BUSPAR [Interacting]
     Active Substance: BUSPIRONE HYDROCHLORIDE
  7. NEXAVAR [Suspect]
     Active Substance: SORAFENIB
     Indication: HEPATIC CANCER
     Dosage: 400 MG, BID
     Route: 048
     Dates: start: 201607

REACTIONS (8)
  - Drug interaction [None]
  - Electrocardiogram QT prolonged [None]
  - Diastolic hypertension [None]
  - Nausea [None]
  - Serotonin syndrome [None]
  - Somnolence [None]
  - Hypotension [None]
  - Pain [None]

NARRATIVE: CASE EVENT DATE: 20160701
